FAERS Safety Report 5320083-4 (Version None)
Quarter: 2007Q1

REPORT INFORMATION
  Report Type: 
  Country: None (occurrence: None)
  Receive Date: 20070215
  Receipt Date: 20060417
  Transmission Date: 20070707
  Serious: Yes (Other)
  Sender: FDA-Public Use
  Company Number: MC200501226

PATIENT
  Age: 62 Year
  Sex: Female
  Weight: 94.2 kg

DRUGS (13)
  1. ANGIOMAX [Suspect]
     Dosage: SEE IMAGE
     Route: 042
     Dates: start: 20051125, end: 20051125
  2. ANGIOMAX [Suspect]
     Dosage: SEE IMAGE
     Route: 042
     Dates: start: 20051125, end: 20051125
  3. PLAVIX [Concomitant]
  4. ASPIRIN [Concomitant]
  5. FOSINOPRIL SODIUM [Concomitant]
  6. VYTORIN [Concomitant]
  7. GLIPIZIDE [Concomitant]
  8. COREG [Concomitant]
  9. DARVOCET-N (PARACETAMOL, DEXTROPROPOXYPHENE NAPSILATE) [Concomitant]
  10. HEPARIN [Concomitant]
  11. NESIRITIDE (NESIRITIDE) [Concomitant]
  12. NITROGLYCERIN ^A.L.^ (GLYCERYL TRINITRATE) [Concomitant]
  13. MUCOMYST [Concomitant]

REACTIONS (2)
  - MYOCARDIAL INFARCTION [None]
  - STENT OCCLUSION [None]
